FAERS Safety Report 23625413 (Version 1)
Quarter: 2024Q1

REPORT INFORMATION
  Report Type: Spontaneous
  Country: CA (occurrence: CA)
  Receive Date: 20240313
  Receipt Date: 20240313
  Transmission Date: 20240409
  Serious: Yes (Other)
  Sender: FDA-Public Use
  Company Number: CA-JNJFOC-20240319440

PATIENT
  Sex: Male

DRUGS (10)
  1. REMICADE [Suspect]
     Active Substance: INFLIXIMAB
     Indication: Crohn^s disease
     Route: 041
  2. BENADRYL [Concomitant]
     Active Substance: DIPHENHYDRAMINE HYDROCHLORIDE
     Indication: Premedication
  3. BROMAZEPAM [Concomitant]
     Active Substance: BROMAZEPAM
  4. HYDROMORPHONE [Concomitant]
     Active Substance: HYDROMORPHONE
  5. RELAXA [MACROGOL 3350] [Concomitant]
  6. SOLU-CORTEF [Concomitant]
     Active Substance: HYDROCORTISONE SODIUM SUCCINATE
     Indication: Premedication
     Route: 030
  7. TYLENOL [Concomitant]
     Active Substance: ACETAMINOPHEN
  8. VENLAFAXINE HYDROCHLORIDE [Concomitant]
     Active Substance: VENLAFAXINE HYDROCHLORIDE
  9. CHOLECALCIFEROL [Concomitant]
     Active Substance: CHOLECALCIFEROL
  10. VITAMIN B12 [Concomitant]
     Active Substance: CYANOCOBALAMIN

REACTIONS (4)
  - Colitis ischaemic [Unknown]
  - Anal fistula [Unknown]
  - Drug specific antibody present [Unknown]
  - Large intestine infection [Unknown]
